FAERS Safety Report 7270888-8 (Version None)
Quarter: 2011Q1

REPORT INFORMATION
  Report Type: 
  Country: None (occurrence: None)
  Receive Date: 20110125
  Receipt Date: 20110125
  Transmission Date: 20110831
  Serious: Yes (Life-Threatening, Hospitalization, Disabling, Other)
  Sender: FDA-Public Use
  Company Number: None

PATIENT
  Age: 61 Year
  Sex: Male
  Weight: 176.4492 kg

DRUGS (1)
  1. TIKOSYN [Suspect]
     Indication: ATRIAL FIBRILLATION
     Dosage: 500 MCG ONE EVERY 12 HOURS PO
     Route: 048
     Dates: start: 20100726, end: 20101217

REACTIONS (4)
  - FALL [None]
  - VENTRICULAR FIBRILLATION [None]
  - LOSS OF CONSCIOUSNESS [None]
  - MALAISE [None]
